FAERS Safety Report 4845779-X (Version None)
Quarter: 2005Q4

REPORT INFORMATION
  Report Type: 
  Country: None (occurrence: None)
  Receive Date: 20051201
  Receipt Date: 20051115
  Transmission Date: 20060501
  Serious: Yes (Hospitalization)
  Sender: FDA-Public Use
  Company Number: US200511001218

PATIENT
  Age: 50 Year
  Sex: Female
  Weight: 104.3 kg

DRUGS (6)
  1. PROZAC [Suspect]
     Indication: DEPRESSION
     Dates: start: 19890101
  2. CYMBALTA [Suspect]
     Indication: DEPRESSION
     Dosage: 20 MG,
  3. SYMBYAX [Suspect]
     Indication: DEPRESSION
     Dosage: D/F,
     Dates: start: 20051101, end: 20051101
  4. DEPAKOTE [Concomitant]
  5. LEXAPRO [Concomitant]
  6. ESCITALOPRAM OXALATE [Concomitant]

REACTIONS (12)
  - AMNESIA [None]
  - CONFUSIONAL STATE [None]
  - CRYING [None]
  - DIZZINESS [None]
  - DRUG INEFFECTIVE [None]
  - HEADACHE [None]
  - HYPERPHAGIA [None]
  - MEDICATION ERROR [None]
  - MORBID THOUGHTS [None]
  - SOMNOLENCE [None]
  - WEIGHT DECREASED [None]
  - WEIGHT INCREASED [None]
